FAERS Safety Report 4642047-6 (Version None)
Quarter: 2005Q2

REPORT INFORMATION
  Report Type: 
  Country: None (occurrence: None)
  Receive Date: 20050421
  Receipt Date: 20050406
  Transmission Date: 20051028
  Serious: Yes (Hospitalization)
  Sender: FDA-Public Use
  Company Number: JP_050406301

PATIENT
  Sex: Female

DRUGS (3)
  1. ZYPREXA [Suspect]
     Indication: SCHIZOPHRENIA
     Dosage: 25 MG DAY
     Route: 048
  2. RISPERIDONE [Concomitant]
  3. QUETIAPINE [Concomitant]

REACTIONS (8)
  - DELUSION [None]
  - DYSKINESIA [None]
  - DYSPHONIA [None]
  - DYSTONIA [None]
  - HALLUCINATION, AUDITORY [None]
  - PSYCHOMOTOR HYPERACTIVITY [None]
  - SALIVARY HYPERSECRETION [None]
  - SCHIZOPHRENIA [None]
